FAERS Safety Report 11312637 (Version 1)
Quarter: 2015Q3

REPORT INFORMATION
  Report Type: Spontaneous
  Country: US (occurrence: US)
  Receive Date: 20150727
  Receipt Date: 20150727
  Transmission Date: 20151125
  Serious: No
  Sender: FDA-Public Use
  Company Number: US-ABBVIE-14P-163-1289885-00

PATIENT
  Sex: Female
  Weight: 53.57 kg

DRUGS (2)
  1. SYNTHROID [Suspect]
     Active Substance: LEVOTHYROXINE SODIUM
     Dosage: ONE AND A HALF TABLETS PER DAY OF THE 25MCG TABLET TO EQUAL 37 MCG.
  2. SYNTHROID [Suspect]
     Active Substance: LEVOTHYROXINE SODIUM
     Indication: HYPOTHYROIDISM
     Dates: start: 1999

REACTIONS (2)
  - Crohn^s disease [Not Recovered/Not Resolved]
  - Pain [Recovering/Resolving]

NARRATIVE: CASE EVENT DATE: 2013
